FAERS Safety Report 15365898 (Version 1)
Quarter: 2018Q3

REPORT INFORMATION
  Report Type: Spontaneous
  Country: US (occurrence: US)
  Receive Date: 20180831
  Receipt Date: 20180831
  Transmission Date: 20181010
  Serious: Yes (Life-Threatening)
  Sender: FDA-Public Use
  Company Number: None

PATIENT
  Age: 86 Year
  Sex: Male
  Weight: 78.02 kg

DRUGS (9)
  1. FOLIC ACID. [Concomitant]
     Active Substance: FOLIC ACID
  2. SIMVASTATIN. [Concomitant]
     Active Substance: SIMVASTATIN
  3. LUMIGAN [Concomitant]
     Active Substance: BIMATOPROST
  4. RESMED [Concomitant]
  5. CALCIUM [Concomitant]
     Active Substance: CALCIUM
  6. RADICAVA [Suspect]
     Active Substance: EDARAVONE
     Indication: DRUG THERAPY
     Dosage: ?          QUANTITY:INFUSION 2 BAGS;OTHER ROUTE:INFUSION PICC LINE?
     Dates: start: 20180709, end: 20180806
  7. WHEELCHAIR [Concomitant]
     Active Substance: DEVICE
  8. C PAP MACHINE [Concomitant]
  9. ZOLOFT [Concomitant]
     Active Substance: SERTRALINE HYDROCHLORIDE

REACTIONS (5)
  - Muscle spasms [None]
  - Neck pain [None]
  - Musculoskeletal pain [None]
  - Pain [None]
  - Arthralgia [None]

NARRATIVE: CASE EVENT DATE: 20180806
